FAERS Safety Report 7470161-9 (Version None)
Quarter: 2011Q2

REPORT INFORMATION
  Report Type: 
  Country: None (occurrence: None)
  Receive Date: 20110510
  Receipt Date: 20110428
  Transmission Date: 20111010
  Serious: Yes (Hospitalization)
  Sender: FDA-Public Use
  Company Number: B0717524A

PATIENT
  Sex: Male
  Weight: 72 kg

DRUGS (5)
  1. SELZENTRY [Suspect]
     Indication: HIV INFECTION
     Dosage: 150MG TWICE PER DAY
     Dates: start: 20110208, end: 20110304
  2. ATAZANAVIR [Concomitant]
     Indication: HIV INFECTION
     Dates: start: 20030324
  3. TENOFOVIR DISOPROXIL FUMARATE [Concomitant]
     Indication: HIV INFECTION
     Dates: start: 20061205
  4. ISENTRESS [Suspect]
     Indication: HIV INFECTION
     Dosage: 400MG TWICE PER DAY
     Dates: start: 20110208, end: 20110304
  5. LAMIVUDINE [Concomitant]
     Dates: start: 20021205

REACTIONS (2)
  - DRUG INTERACTION [None]
  - RHABDOMYOLYSIS [None]
